FAERS Safety Report 12907683 (Version 1)
Quarter: 2016Q4

REPORT INFORMATION
  Report Type: Spontaneous
  Country: US (occurrence: US)
  Receive Date: 20161103
  Receipt Date: 20161103
  Transmission Date: 20170207
  Serious: No
  Sender: FDA-Public Use
  Company Number: US-BAUSCH-BL-2016-023218

PATIENT
  Age: 29 Year
  Sex: Female

DRUGS (1)
  1. UCERIS [Suspect]
     Active Substance: BUDESONIDE
     Indication: COLITIS ULCERATIVE
     Dosage: 1 METERED DOSE TWICE DAILY FOR 2 WEEKS FOLLOWED BY ONCE DAILY FOR 4 WEEKS
     Route: 054
     Dates: start: 20160918

REACTIONS (3)
  - Drug administration error [Unknown]
  - Incorrect dose administered [Unknown]
  - Device use issue [Unknown]

NARRATIVE: CASE EVENT DATE: 20160918
